FAERS Safety Report 14548130 (Version 2)
Quarter: 2018Q1

REPORT INFORMATION
  Report Type: Report from Study
  Country: GB (occurrence: GB)
  Receive Date: 20180219
  Receipt Date: 20180311
  Transmission Date: 20180509
  Serious: Yes (Hospitalization, Other)
  Sender: FDA-Public Use
  Company Number: GB-BRISTOL-MYERS SQUIBB COMPANY-BMS-2018-006624

PATIENT
  Age: 65 Year
  Sex: Female

DRUGS (2)
  1. ABATACEPT [Suspect]
     Active Substance: ABATACEPT
     Indication: RHEUMATOID ARTHRITIS
     Dosage: 125 MG, QWK
     Route: 058
     Dates: start: 20161026
  2. MORPHINE [Concomitant]
     Active Substance: MORPHINE
     Indication: PRODUCT USED FOR UNKNOWN INDICATION
     Route: 065

REACTIONS (8)
  - Immunodeficiency [Unknown]
  - Muscle spasms [Unknown]
  - Chronic obstructive pulmonary disease [Unknown]
  - Pyrexia [Unknown]
  - Headache [Unknown]
  - Osteoporosis [Unknown]
  - Malaise [Unknown]
  - Ovarian disorder [Unknown]

NARRATIVE: CASE EVENT DATE: 20180124
